FAERS Safety Report 23338901 (Version 1)
Quarter: 2023Q4

REPORT INFORMATION
  Report Type: Report from Study
  Country: IN (occurrence: IN)
  Receive Date: 20231226
  Receipt Date: 20231226
  Transmission Date: 20240109
  Serious: Yes (Hospitalization)
  Sender: FDA-Public Use
  Company Number: IN-Merck Healthcare KGaA-2023495133

PATIENT
  Age: 21 Year
  Sex: Male

DRUGS (1)
  1. CETUXIMAB [Suspect]
     Active Substance: CETUXIMAB
     Indication: Head and neck cancer metastatic
     Dosage: 400 MG, WEEKLY (1/W)
     Route: 042
     Dates: start: 20231128

REACTIONS (4)
  - Abdominal pain [Recovering/Resolving]
  - Full blood count decreased [Recovering/Resolving]
  - White blood cell count decreased [Recovering/Resolving]
  - Blood sodium decreased [Recovering/Resolving]
